FAERS Safety Report 16305061 (Version 1)
Quarter: 2019Q2

REPORT INFORMATION
  Report Type: Spontaneous
  Country: US (occurrence: US)
  Receive Date: 20190510
  Receipt Date: 20190510
  Transmission Date: 20190711
  Serious: Yes (Death)
  Sender: FDA-Public Use
  Company Number: None

PATIENT
  Age: 8 Week
  Sex: Male
  Weight: 7.2 kg

DRUGS (1)
  1. TC99M MERTIATIDE [Suspect]
     Active Substance: TECHNETIUM TC-99M MERTIATIDE
     Indication: IMAGING PROCEDURE
     Dosage: ?          OTHER FREQUENCY:SINGLE INJECTION;?
     Route: 040

REACTIONS (2)
  - Infusion related reaction [None]
  - Cardiac arrest [None]

NARRATIVE: CASE EVENT DATE: 20190507
